FAERS Safety Report 9656082 (Version 1)
Quarter: 2013Q4

REPORT INFORMATION
  Report Type: Spontaneous
  Country: US (occurrence: None)
  Receive Date: 20131029
  Receipt Date: 20131029
  Transmission Date: 20140711
  Serious: Yes (Other)
  Sender: FDA-Public Use
  Company Number: None

PATIENT
  Age: 45 Year
  Sex: Female
  Weight: 56.7 kg

DRUGS (1)
  1. SCOPOLAMINE [Suspect]
     Indication: PROPHYLAXIS OF NAUSEA AND VOMITING
     Dosage: ONE PATCH, APPLIED AS MEDICATED PATCH TO SKIN
     Dates: start: 20131021, end: 20131021

REACTIONS (7)
  - Dizziness [None]
  - Presyncope [None]
  - Palpitations [None]
  - Overdose [None]
  - Confusional state [None]
  - Cold sweat [None]
  - Dysuria [None]
